FAERS Safety Report 7285731-0 (Version None)
Quarter: 2011Q1

REPORT INFORMATION
  Report Type: 
  Country: None (occurrence: None)
  Receive Date: 20110210
  Receipt Date: 20110207
  Transmission Date: 20110831
  Serious: Yes (Death, Hospitalization)
  Sender: FDA-Public Use
  Company Number: ES-SANOFI-AVENTIS-2011SA003570

PATIENT
  Age: 82 Year
  Sex: Male

DRUGS (7)
  1. DOCETAXEL [Suspect]
     Route: 041
     Dates: start: 20101227, end: 20101227
  2. ENALAPRIL MALEATE [Concomitant]
  3. ALDACTONE [Concomitant]
  4. DOCETAXEL [Suspect]
     Indication: PROSTATE CANCER
     Route: 041
     Dates: start: 20101026, end: 20101026
  5. BLINDED THERAPY [Suspect]
     Indication: PROSTATE CANCER
     Route: 048
     Dates: start: 20101026, end: 20110114
  6. CARVEDILOL [Concomitant]
  7. PREDNISONE [Suspect]
     Indication: PROSTATE CANCER
     Route: 048
     Dates: start: 20101026

REACTIONS (3)
  - INTERSTITIAL LUNG DISEASE [None]
  - PYREXIA [None]
  - NEUTROPENIA [None]
